FAERS Safety Report 10237812 (Version 1)
Quarter: 2014Q2

REPORT INFORMATION
  Report Type: Spontaneous
  Country: US (occurrence: None)
  Receive Date: 20140612
  Receipt Date: 20140612
  Transmission Date: 20141212
  Serious: No
  Sender: FDA-Public Use
  Company Number: None

PATIENT
  Age: 49 Year
  Sex: Female

DRUGS (8)
  1. ENBREL [Suspect]
     Indication: RHEUMATOID ARTHRITIS
     Route: 058
     Dates: start: 20140607
  2. LIPOZINE [Concomitant]
  3. NARCO [Concomitant]
  4. XANAX [Concomitant]
  5. LASIX [Concomitant]
  6. RELPAX [Concomitant]
  7. OMEPRAZOLE [Concomitant]
  8. PROAIR [Concomitant]

REACTIONS (1)
  - Pruritus generalised [None]
